FAERS Safety Report 5218634-3 (Version None)
Quarter: 2007Q1

REPORT INFORMATION
  Report Type: 
  Country: None (occurrence: None)
  Receive Date: 20061201
  Receipt Date: 20051202
  Transmission Date: 20070707
  Serious: Yes (Hospitalization)
  Sender: FDA-Public Use
  Company Number: PHEH2005US13189

PATIENT
  Sex: Female

DRUGS (2)
  1. LAMISIL [Suspect]
     Indication: NAIL TINEA
     Dosage: 250 MG, QD, ORAL
     Route: 048
  2. ANTIBIOTICS(NO INGREDIENTS/SUBSTANCES) [Suspect]
     Indication: EAR INFECTION
     Dosage: ORAL
     Route: 048

REACTIONS (2)
  - EAR INFECTION [None]
  - HYPERSENSITIVITY [None]
